FAERS Safety Report 6929826-7 (Version None)
Quarter: 2010Q3

REPORT INFORMATION
  Report Type: 
  Country: None (occurrence: None)
  Receive Date: 20100818
  Receipt Date: 20100804
  Transmission Date: 20110219
  Serious: Yes (Other)
  Sender: FDA-Public Use
  Company Number: PHHY2010CA50021

PATIENT
  Sex: Female

DRUGS (6)
  1. ACLASTA [Suspect]
     Indication: OSTEOPOROSIS
     Dosage: YEARLY
     Route: 042
     Dates: start: 20080613, end: 20090923
  2. ACLASTA [Suspect]
     Dosage: YEARLY
     Route: 042
     Dates: start: 20090923
  3. CELEBREX [Concomitant]
     Dosage: 100 MG, BID
  4. LIPITOR [Concomitant]
     Dosage: 10 MG, OD
  5. ELTROXIN [Concomitant]
     Dosage: 0.5 MG OD
  6. ALTACE [Concomitant]
     Dosage: 5 MG OD

REACTIONS (7)
  - ARTHRALGIA [None]
  - ARTHRITIS [None]
  - BACK PAIN [None]
  - CYST [None]
  - PAIN [None]
  - PLANTAR FASCIITIS [None]
  - SPINAL COLUMN STENOSIS [None]
